FAERS Safety Report 4841309-7 (Version None)
Quarter: 2005Q4

REPORT INFORMATION
  Report Type: 
  Country: None (occurrence: None)
  Receive Date: 20051130
  Receipt Date: 20051123
  Transmission Date: 20060501
  Serious: Yes (Disabling)
  Sender: FDA-Public Use
  Company Number: US-GLAXOSMITHKLINE-A0583289A

PATIENT
  Age: 14 Year
  Sex: Female

DRUGS (1)
  1. IMITREX [Suspect]
     Indication: MIGRAINE
     Route: 065
     Dates: start: 20040101, end: 20040101

REACTIONS (2)
  - CONDITION AGGRAVATED [None]
  - HEADACHE [None]
